FAERS Safety Report 5965114-3 (Version None)
Quarter: 2008Q4

REPORT INFORMATION
  Report Type: 
  Country: None (occurrence: None)
  Receive Date: 20081125
  Receipt Date: 20081119
  Transmission Date: 20090506
  Serious: Yes (Life-Threatening, Other)
  Sender: FDA-Public Use
  Company Number: PHEH2008US10377

PATIENT
  Age: 72 Year
  Sex: Female

DRUGS (7)
  1. DIOVAN [Suspect]
  2. BYSTOLIC [Suspect]
     Dosage: 10 MG, ONCE/SINGLE
  3. DOXEPIN HYDROCHLORIDE [Concomitant]
     Dosage: 50 MG, UNK
  4. BENTYL [Concomitant]
     Dosage: 20 MG, UNK
  5. HYZAAR [Concomitant]
     Dosage: 50/12
  6. CLONIDINE [Concomitant]
  7. ALLEGRA [Concomitant]
     Indication: SEASONAL ALLERGY

REACTIONS (3)
  - DIABETES MELLITUS [None]
  - FEELING ABNORMAL [None]
  - HYPERTENSION [None]
